FAERS Safety Report 14347751 (Version 4)
Quarter: 2020Q3

REPORT INFORMATION
  Report Type: Spontaneous
  Country: US (occurrence: US)
  Receive Date: 20180103
  Receipt Date: 20200804
  Transmission Date: 20201102
  Serious: No
  Sender: FDA-Public Use
  Company Number: US-PFIZER INC-2017555023

PATIENT
  Age: 38 Year
  Sex: Female
  Weight: 107 kg

DRUGS (2)
  1. XELJANZ [Suspect]
     Active Substance: TOFACITINIB CITRATE
     Indication: RHEUMATOID ARTHRITIS
     Dosage: 5 MG, 2X/DAY
  2. XELJANZ [Suspect]
     Active Substance: TOFACITINIB CITRATE
     Indication: POLYARTHRITIS

REACTIONS (9)
  - Rhinorrhoea [Unknown]
  - Sinusitis [Recovering/Resolving]
  - Nasopharyngitis [Unknown]
  - Respiratory disorder [Unknown]
  - Oropharyngeal pain [Unknown]
  - Influenza [Unknown]
  - Bronchitis [Unknown]
  - Nasal discomfort [Recovering/Resolving]
  - Pyrexia [Unknown]

NARRATIVE: CASE EVENT DATE: 201701
